FAERS Safety Report 8347444-3 (Version None)
Quarter: 2012Q2

REPORT INFORMATION
  Report Type: 
  Country: None (occurrence: None)
  Receive Date: 20120509
  Receipt Date: 20120424
  Transmission Date: 20120825
  Serious: Yes (Other)
  Sender: FDA-Public Use
  Company Number: US-ROCHE-1067038

PATIENT
  Age: 10 Year
  Sex: Female

DRUGS (5)
  1. DEXAMETHASONE [Concomitant]
  2. AVASTIN [Suspect]
     Indication: ASTROCYTOMA, LOW GRADE
     Route: 042
  3. AVASTIN [Suspect]
     Route: 042
  4. IRINOTECAN HCL [Suspect]
     Indication: ASTROCYTOMA, LOW GRADE
     Dosage: 125 MG/M2 - 250 MG/M2
     Route: 042
  5. IRINOTECAN HCL [Suspect]

REACTIONS (1)
  - OSTEONECROSIS [None]
